FAERS Safety Report 9806209 (Version 1)
Quarter: 2014Q1

REPORT INFORMATION
  Report Type: Report from Study
  Country: US (occurrence: US)
  Receive Date: 20140109
  Receipt Date: 20140109
  Transmission Date: 20141002
  Serious: Yes (Hospitalization)
  Sender: FDA-Public Use
  Company Number: GXBR2014US000458

PATIENT
  Age: 4 Year
  Sex: Male
  Weight: 13.15 kg

DRUGS (1)
  1. OMNITROPE [Suspect]
     Indication: BODY HEIGHT BELOW NORMAL
     Dosage: 0.7 MG, QD
     Route: 065
     Dates: start: 20131223

REACTIONS (1)
  - Asthma [Recovered/Resolved]
